FAERS Safety Report 26139915 (Version 2)
Quarter: 2025Q4

REPORT INFORMATION
  Report Type: Report from Study
  Country: CA (occurrence: CA)
  Receive Date: 20251210
  Receipt Date: 20251214
  Transmission Date: 20260117
  Serious: Yes (Other)
  Sender: PFIZER
  Company Number: CA-PFIZER INC-202500224183

PATIENT
  Age: 28 Year
  Sex: Female

DRUGS (2)
  1. IXIFI [Suspect]
     Active Substance: INFLIXIMAB-QBTX
     Indication: Crohn^s disease
     Dosage: 7 MG/KG, EVERY 6 WEEKS
     Route: 042
     Dates: start: 20250625
  2. IXIFI [Suspect]
     Active Substance: INFLIXIMAB-QBTX
     Dosage: 7 MG/KG, EVERY 6 WEEKS
     Route: 042
     Dates: start: 20251030

REACTIONS (6)
  - Ileus [Recovered/Resolved]
  - Post procedural haemorrhage [Unknown]
  - Haemorrhoids [Unknown]
  - Condition aggravated [Not Recovered/Not Resolved]
  - Presyncope [Unknown]
  - Fatigue [Recovered/Resolved]

NARRATIVE: CASE EVENT DATE: 20250101
